FAERS Safety Report 7065896-6 (Version None)
Quarter: 2010Q4

REPORT INFORMATION
  Report Type: 
  Country: None (occurrence: None)
  Receive Date: 20101027
  Receipt Date: 20101018
  Transmission Date: 20110411
  Serious: Yes (Hospitalization, Other)
  Sender: FDA-Public Use
  Company Number: US-ABBOTT-10P-163-0679153-00

PATIENT
  Sex: Female
  Weight: 61.29 kg

DRUGS (1)
  1. SYNTHROID [Suspect]
     Indication: HYPOTHYROIDISM
     Dosage: 1.5 TABLETS PER DAY
     Dates: start: 19950101

REACTIONS (8)
  - ARTHROPOD BITE [None]
  - DIZZINESS [None]
  - EAR PAIN [None]
  - ENCEPHALITIS [None]
  - INNER EAR INFLAMMATION [None]
  - LABYRINTHITIS [None]
  - MOBILITY DECREASED [None]
  - VOMITING [None]
